FAERS Safety Report 23575692 (Version 1)
Quarter: 2024Q1

REPORT INFORMATION
  Report Type: Report from Study
  Country: US (occurrence: US)
  Receive Date: 20240228
  Receipt Date: 20240228
  Transmission Date: 20240410
  Serious: Yes (Other)
  Sender: FDA-Public Use
  Company Number: US-ABBVIE-5653009

PATIENT
  Age: 30 Year
  Sex: Female

DRUGS (1)
  1. HUMIRA [Suspect]
     Active Substance: ADALIMUMAB
     Indication: Hidradenitis
     Route: 058
     Dates: start: 20240221

REACTIONS (5)
  - Loss of consciousness [Recovered/Resolved]
  - Back pain [Recovering/Resolving]
  - Heart rate increased [Recovered/Resolved]
  - Fall [Unknown]
  - Back injury [Unknown]

NARRATIVE: CASE EVENT DATE: 20240222
